FAERS Safety Report 5943165-2 (Version None)
Quarter: 2008Q4

REPORT INFORMATION
  Report Type: 
  Country: None (occurrence: None)
  Receive Date: 20081106
  Receipt Date: 20081030
  Transmission Date: 20090506
  Serious: Yes (Life-Threatening, Hospitalization, Other)
  Sender: FDA-Public Use
  Company Number: A0754641A

PATIENT
  Age: 64 Year
  Sex: Male
  Weight: 81 kg

DRUGS (8)
  1. AVANDAMET [Suspect]
     Indication: DRUG USE FOR UNKNOWN INDICATION
     Dosage: 2TAB PER DAY
     Route: 048
  2. ALLOPURINOL [Concomitant]
     Route: 048
  3. CELEBREX [Concomitant]
     Route: 048
  4. FERROUS GLUCONATE [Concomitant]
     Route: 048
  5. FUROSEMIDE [Concomitant]
     Route: 048
  6. NADOLOL [Concomitant]
     Route: 048
  7. RAMIPRIL [Concomitant]
     Route: 048
  8. SPIRONOLACTONE [Concomitant]
     Route: 048

REACTIONS (6)
  - BLOOD LACTIC ACID INCREASED [None]
  - EATING DISORDER [None]
  - HYPOTENSION [None]
  - MALAISE [None]
  - METABOLIC ACIDOSIS [None]
  - RENAL FAILURE ACUTE [None]
